FAERS Safety Report 7407560-7 (Version None)
Quarter: 2011Q2

REPORT INFORMATION
  Report Type: 
  Country: None (occurrence: None)
  Receive Date: 20110406
  Receipt Date: 20110406
  Transmission Date: 20111010
  Serious: Yes (Hospitalization)
  Sender: FDA-Public Use
  Company Number: None

PATIENT
  Sex: Female
  Weight: 64.5 kg

DRUGS (3)
  1. CISPLATIN [Suspect]
     Dosage: 130 MG
  2. FLUOROURACIL [Suspect]
     Dosage: 6960 MG
  3. ERBITUX [Suspect]
     Dosage: 1556 MG

REACTIONS (9)
  - VOMITING [None]
  - ASTHENIA [None]
  - SUPRAPUBIC PAIN [None]
  - NEUTROPENIA [None]
  - DIARRHOEA [None]
  - PYREXIA [None]
  - LETHARGY [None]
  - NAUSEA [None]
  - CYSTITIS [None]
